FAERS Safety Report 10368555 (Version 1)
Quarter: 2014Q3

REPORT INFORMATION
  Report Type: Spontaneous
  Country: FR (occurrence: FR)
  Receive Date: 20140807
  Receipt Date: 20140807
  Transmission Date: 20150326
  Serious: Yes (Hospitalization)
  Sender: FDA-Public Use
  Company Number: FR-TEVA-499160ISR

PATIENT
  Age: 59 Year
  Sex: Male

DRUGS (13)
  1. KARDEGIC 75 MYLAN [Concomitant]
     Dosage: 1 DOSAGE FORMS DAILY; IN THE NOON, USUAL TREATMENT
  2. BECOTIDE 250 MCG [Concomitant]
     Dosage: 2 DOSAGE FORMS DAILY; DOAGE FORM: PUFF, USUAL TREATMENT
  3. RAMIPRIL 5 MG WINTHROP [Concomitant]
     Dosage: 1 DOSAGE FORMS DAILY; INE THE MORNING, USUAL TREATMENT
  4. OMEPRAZOLE 10 [Concomitant]
  5. LIPUR 450 MG [Concomitant]
     Dosage: 450 MILLIGRAM DAILY; USUAL TREATMENT
  6. ALLOPURINOL 200 MYLAN [Concomitant]
     Dosage: 1 DOSAGE FORMS DAILY; IN THE NOON, USUAL TREATMENT
  7. FUROSEMIDE 20 MYLAN [Concomitant]
     Dosage: IN THE MORNING, USUAL TREATMENT
  8. SPIRIVA [Concomitant]
     Active Substance: TIOTROPIUM BROMIDE MONOHYDRATE
     Dosage: 18 MICROGRAM DAILY; IN THE MORNING, USUAL TREATMENT
  9. XALATAN EYE DROP 0.005 PERCENT [Concomitant]
  10. RYTHMOL 300 [Concomitant]
     Dosage: USUAL TREATMENT
  11. GLIBENCLAMIDE TEVA [Suspect]
     Active Substance: GLYBURIDE
     Indication: PRODUCT USED FOR UNKNOWN INDICATION
     Dosage: 5 MILLIGRAM DAILY; IN THE MORNING AND IN THE EVENING
     Route: 048
     Dates: start: 20111215, end: 20120114
  12. VENTOLINE 100 MCG [Concomitant]
     Dosage: USUAL TREATMENT, IN CASE OF CRISIS
  13. METFORMINE 850 MYLAN [Concomitant]
     Dosage: 2 DOSAGE FORMS DAILY; IN THE MORNING AND IN THE EVENING, USUAL TREATMENT

REACTIONS (6)
  - Purpura [Recovering/Resolving]
  - Urinary tract infection [Unknown]
  - Diarrhoea [None]
  - Myopathy [Unknown]
  - Henoch-Schonlein purpura [Unknown]
  - Arthralgia [None]

NARRATIVE: CASE EVENT DATE: 20120101
